FAERS Safety Report 13617831 (Version 2)
Quarter: 2017Q2

REPORT INFORMATION
  Report Type: Spontaneous
  Country: US (occurrence: US)
  Receive Date: 20170606
  Receipt Date: 20170620
  Transmission Date: 20170830
  Serious: Yes (Other)
  Sender: FDA-Public Use
  Company Number: US-CONCORDIA PHARMACEUTICALS INC.-GSH201706-003285

PATIENT
  Age: 55 Year
  Sex: Male

DRUGS (11)
  1. CYCLOPHOSPHAMIDE. [Suspect]
     Active Substance: CYCLOPHOSPHAMIDE
     Indication: MULTICENTRIC RETICULOHISTIOCYTOSIS
  2. ALENDRONATE [Concomitant]
     Active Substance: ALENDRONATE SODIUM
     Indication: PROPHYLAXIS
  3. PREDNISONE. [Suspect]
     Active Substance: PREDNISONE
  4. ALENDRONATE [Concomitant]
     Active Substance: ALENDRONATE SODIUM
     Indication: OSTEOPOROSIS
  5. ETANERCEPT [Concomitant]
     Active Substance: ETANERCEPT
  6. LEFLUNOMIDE. [Concomitant]
     Active Substance: LEFLUNOMIDE
  7. HYDROXYCHLOROQUINE [Suspect]
     Active Substance: HYDROXYCHLOROQUINE
     Indication: MULTICENTRIC RETICULOHISTIOCYTOSIS
     Route: 065
  8. PREDNISONE. [Suspect]
     Active Substance: PREDNISONE
  9. METHOTREXATE. [Suspect]
     Active Substance: METHOTREXATE
     Indication: MULTICENTRIC RETICULOHISTIOCYTOSIS
     Route: 065
  10. PREDNISONE. [Suspect]
     Active Substance: PREDNISONE
     Indication: MULTICENTRIC RETICULOHISTIOCYTOSIS
  11. CHLORAMBUCIL [Suspect]
     Active Substance: CHLORAMBUCIL
     Indication: MULTICENTRIC RETICULOHISTIOCYTOSIS
     Route: 065

REACTIONS (5)
  - Skin lesion [Recovered/Resolved]
  - Arthritis [Recovering/Resolving]
  - Rebound effect [Unknown]
  - Haematuria [Unknown]
  - Drug ineffective [Unknown]
